FAERS Safety Report 14940840 (Version 1)
Quarter: 2018Q2

REPORT INFORMATION
  Report Type: Spontaneous
  Country: DE (occurrence: DE)
  Receive Date: 20180525
  Receipt Date: 20180525
  Transmission Date: 20180711
  Serious: Yes (Hospitalization)
  Sender: FDA-Public Use
  Company Number: DE-ELI_LILLY_AND_COMPANY-DE201805006234

PATIENT
  Age: 23 Year
  Sex: Female

DRUGS (1)
  1. ZYPADHERA [Suspect]
     Active Substance: OLANZAPINE PAMOATE
     Indication: PRODUCT USED FOR UNKNOWN INDICATION
     Dosage: 405 MG, MONTHLY (1/M)
     Route: 030

REACTIONS (9)
  - Post-injection delirium sedation syndrome [Recovered/Resolved]
  - Dysarthria [Recovered/Resolved]
  - Tachycardia [Recovered/Resolved]
  - Disorientation [Recovered/Resolved]
  - Dizziness [Recovered/Resolved]
  - Disturbance in attention [Recovered/Resolved]
  - Electrocardiogram QT prolonged [Recovered/Resolved]
  - Hypertension [Recovered/Resolved]
  - Akathisia [Recovered/Resolved]

NARRATIVE: CASE EVENT DATE: 20180509
